FAERS Safety Report 20150696 (Version 11)
Quarter: 2023Q4

REPORT INFORMATION
  Report Type: Spontaneous
  Country: CA (occurrence: CA)
  Receive Date: 20211206
  Receipt Date: 20231221
  Transmission Date: 20240109
  Serious: Yes (Other)
  Sender: FDA-Public Use
  Company Number: CA-BAUSCH-BL-2021-039639

PATIENT
  Age: 65 Year
  Sex: Female

DRUGS (12)
  1. METFORMIN [Suspect]
     Active Substance: METFORMIN HYDROCHLORIDE
     Indication: Diabetes mellitus
     Route: 065
  2. METFORMIN [Suspect]
     Active Substance: METFORMIN HYDROCHLORIDE
     Indication: Diabetes mellitus
     Route: 065
  3. LANREOTIDE ACETATE [Suspect]
     Active Substance: LANREOTIDE ACETATE
     Indication: Gastroenteropancreatic neuroendocrine tumour disease
     Dosage: SOLUTION(EXTENDED RELEASE), PRE-FILLED SYRINGE
     Route: 058
  4. LANREOTIDE ACETATE [Suspect]
     Active Substance: LANREOTIDE ACETATE
     Route: 058
  5. LUTETIUM OXODOTREOTIDE LU-177 [Suspect]
     Active Substance: LUTETIUM OXODOTREOTIDE LU-177
     Indication: Product used for unknown indication
     Route: 065
  6. GLICLAZIDE [Suspect]
     Active Substance: GLICLAZIDE
     Indication: Diabetes mellitus
     Dosage: TABLET (EXTENDED- RELEASE)
     Route: 065
  7. GLICLAZIDE [Suspect]
     Active Substance: GLICLAZIDE
     Dosage: TABLET (EXTENDED- RELEASE)
     Route: 065
  8. GLICLAZIDE [Suspect]
     Active Substance: GLICLAZIDE
     Route: 065
  9. LUTATHERA [Suspect]
     Active Substance: LUTETIUM OXODOTREOTIDE LU-177
     Indication: Product used for unknown indication
     Route: 065
  10. PERINDOPRIL ERBULINE [Concomitant]
     Indication: Product used for unknown indication
  11. PERINDOPRIL ERBULINE [Concomitant]
  12. LOPERAMIDE [Concomitant]
     Active Substance: LOPERAMIDE
     Indication: Product used for unknown indication
     Dosage: AS REQUIRED
     Route: 065

REACTIONS (50)
  - Neoplasm progression [Not Recovered/Not Resolved]
  - Pyrexia [Not Recovered/Not Resolved]
  - Alopecia [Recovered/Resolved]
  - Alopecia [Not Recovered/Not Resolved]
  - Chills [Recovered/Resolved]
  - Decreased interest [Recovered/Resolved]
  - Pyrexia [Not Recovered/Not Resolved]
  - Pyrexia [Not Recovered/Not Resolved]
  - Illness [Not Recovered/Not Resolved]
  - Oral herpes [Not Recovered/Not Resolved]
  - Cough [Not Recovered/Not Resolved]
  - Stress [Not Recovered/Not Resolved]
  - Blood glucose abnormal [Not Recovered/Not Resolved]
  - Weight decreased [Not Recovered/Not Resolved]
  - Weight decreased [Recovered/Resolved]
  - Decreased appetite [Not Recovered/Not Resolved]
  - Injection site mass [Not Recovered/Not Resolved]
  - Injection site pain [Recovered/Resolved]
  - Injection site pruritus [Not Recovered/Not Resolved]
  - Eating disorder [Recovered/Resolved]
  - Hypertension [Not Recovered/Not Resolved]
  - Malaise [Not Recovered/Not Resolved]
  - Asthenia [Recovered/Resolved]
  - Asthenia [Recovered/Resolved]
  - Fatigue [Recovered/Resolved]
  - Fatigue [Recovered/Resolved]
  - Dizziness [Recovered/Resolved]
  - Dizziness [Recovered/Resolved]
  - Abdominal pain upper [Recovered/Resolved]
  - Erythema [Not Recovered/Not Resolved]
  - Diarrhoea [Not Recovered/Not Resolved]
  - Diarrhoea [Recovered/Resolved]
  - Faeces soft [Recovered/Resolved]
  - Fatigue [Recovered/Resolved]
  - Faeces soft [Recovered/Resolved]
  - Nausea [Recovered/Resolved]
  - Hyperglycaemia [Not Recovered/Not Resolved]
  - Nausea [Recovered/Resolved]
  - Vomiting [Recovered/Resolved]
  - Fatigue [Not Recovered/Not Resolved]
  - Fatigue [Not Recovered/Not Resolved]
  - Vomiting [Recovered/Resolved]
  - Diarrhoea [Recovered/Resolved]
  - Fatigue [Recovered/Resolved]
  - Fatigue [Recovered/Resolved]
  - Nausea [Recovered/Resolved]
  - Uterine prolapse [Not Recovered/Not Resolved]
  - Nausea [Recovered/Resolved]
  - Drug ineffective [Not Recovered/Not Resolved]
  - Off label use [Not Recovered/Not Resolved]
